FAERS Safety Report 9195739 (Version 2)
Quarter: 2013Q2

REPORT INFORMATION
  Report Type: Spontaneous
  Country: GB (occurrence: GB)
  Receive Date: 20130328
  Receipt Date: 20130426
  Transmission Date: 20140414
  Serious: Yes (Hospitalization, Other)
  Sender: FDA-Public Use
  Company Number: GB-AMGEN-GBRSP2013020090

PATIENT
  Age: 76 Year
  Sex: Female
  Weight: 60 kg

DRUGS (4)
  1. PROLIA [Suspect]
     Indication: OSTEOPOROSIS
     Dosage: 60 MG, UNK
     Route: 058
     Dates: start: 20120104
  2. MEBEVERINE [Concomitant]
     Dosage: 135 MG, TID
     Route: 048
  3. FUROSEMIDE [Concomitant]
     Dosage: 20 MG, QD
     Route: 048
  4. LOSARTIN [Concomitant]
     Dosage: 50 MG, QD
     Route: 048

REACTIONS (2)
  - Diverticulitis [Unknown]
  - Gastrointestinal haemorrhage [Recovered/Resolved]
